FAERS Safety Report 10032752 (Version 2)
Quarter: 2014Q2

REPORT INFORMATION
  Report Type: Spontaneous
  Country: SE (occurrence: SE)
  Receive Date: 20140324
  Receipt Date: 20140402
  Transmission Date: 20141212
  Serious: Yes (Hospitalization, Other)
  Sender: FDA-Public Use
  Company Number: SE-ASTRAZENECA-2014SE16745

PATIENT
  Age: 66 Year
  Sex: Female
  Weight: 67 kg

DRUGS (4)
  1. SYMBICORT FORTE TURBUHALER [Suspect]
     Indication: CHRONIC OBSTRUCTIVE PULMONARY DISEASE
     Dosage: 320/9 ?G/DOSE, TWO DOSAGE FORM TWO TIMES DAILY
     Route: 055
     Dates: start: 2002, end: 2013
  2. SYMBICORT FORTE TURBUHALER [Suspect]
     Indication: CHRONIC OBSTRUCTIVE PULMONARY DISEASE
     Dosage: SYMBICORT FORTE, UNKNOWN FREQUENCY
     Route: 055
     Dates: start: 2013
  3. SYMBICORT FORTE TURBUHALER [Suspect]
     Indication: CHRONIC OBSTRUCTIVE PULMONARY DISEASE
     Dosage: SYMBICORT, ONE DOSAGE FORM TWO TIMES DAILY
     Route: 055
     Dates: start: 2002, end: 2013
  4. SPIRIVA [Concomitant]

REACTIONS (10)
  - Pulmonary thrombosis [Unknown]
  - Pulmonary embolism [Recovered/Resolved]
  - Influenza [Unknown]
  - H1N1 influenza [Unknown]
  - Wheezing [Unknown]
  - Skin atrophy [Unknown]
  - Abdominal distension [Unknown]
  - Joint swelling [Unknown]
  - Weight increased [Unknown]
  - Contusion [Unknown]
